FAERS Safety Report 14333032 (Version 2)
Quarter: 2018Q1

REPORT INFORMATION
  Report Type: Spontaneous
  Country: US (occurrence: US)
  Receive Date: 20171228
  Receipt Date: 20180122
  Transmission Date: 20180509
  Serious: Yes (Other)
  Sender: FDA-Public Use
  Company Number: PHEH2017US041668

PATIENT
  Age: 65 Year
  Sex: Female
  Weight: 63.5 kg

DRUGS (5)
  1. LOSARTAN. [Suspect]
     Active Substance: LOSARTAN
     Indication: BLOOD PRESSURE INCREASED
     Dosage: 50 OT, QD
     Route: 048
  2. LYRICA [Suspect]
     Active Substance: PREGABALIN
     Indication: MULTIPLE SCLEROSIS
     Dosage: 100 OT, QD
     Route: 048
  3. GILENYA [Suspect]
     Active Substance: FINGOLIMOD HYDROCHLORIDE
     Indication: MULTIPLE SCLEROSIS
     Dosage: 0.5 MG, UNK
     Route: 048
     Dates: end: 20160129
  4. GABAPENTIN. [Suspect]
     Active Substance: GABAPENTIN
     Indication: MULTIPLE SCLEROSIS
     Dosage: 300 OT, QD
     Route: 048
  5. CELECOXIB. [Suspect]
     Active Substance: CELECOXIB
     Indication: MULTIPLE SCLEROSIS
     Dosage: 200 OT, BID
     Route: 048

REACTIONS (2)
  - Amoeba test positive [Recovered/Resolved]
  - Acanthamoeba infection [Recovered/Resolved with Sequelae]

NARRATIVE: CASE EVENT DATE: 20160707
